FAERS Safety Report 16274061 (Version 1)
Quarter: 2019Q2

REPORT INFORMATION
  Report Type: Spontaneous
  Country: US (occurrence: US)
  Receive Date: 20190401
  Receipt Date: 20190401
  Transmission Date: 20190711
  Serious: Yes (Other)
  Sender: FDA-Public Use
  Company Number: None

PATIENT
  Age: 54 Year
  Sex: Female
  Weight: 68.04 kg

DRUGS (1)
  1. DALFAMPRIDINE 10MG [Suspect]
     Active Substance: DALFAMPRIDINE
     Route: 048
     Dates: start: 20181220, end: 20190101

REACTIONS (5)
  - Fall [None]
  - Malaise [None]
  - Contusion [None]
  - Dizziness [None]
  - Muscular weakness [None]

NARRATIVE: CASE EVENT DATE: 20190111
